FAERS Safety Report 14102272 (Version 1)
Quarter: 2017Q4

REPORT INFORMATION
  Report Type: Spontaneous
  Country: FR (occurrence: FR)
  Receive Date: 20171018
  Receipt Date: 20171018
  Transmission Date: 20180321
  Serious: Yes (Hospitalization)
  Sender: FDA-Public Use
  Company Number: FR-BAYER-2017-191278

PATIENT
  Age: 64 Year
  Sex: Male

DRUGS (1)
  1. NEXAVAR [Suspect]
     Active Substance: SORAFENIB
     Indication: RENAL CANCER
     Dosage: UNK
     Route: 048
     Dates: start: 20140107, end: 201709

REACTIONS (2)
  - Myocardial infarction [Recovered/Resolved with Sequelae]
  - Carotid artery thrombosis [Not Recovered/Not Resolved]

NARRATIVE: CASE EVENT DATE: 20170829
